FAERS Safety Report 15876593 (Version 2)
Quarter: 2019Q1

REPORT INFORMATION
  Report Type: Spontaneous
  Country: US (occurrence: US)
  Receive Date: 20190127
  Receipt Date: 20190312
  Transmission Date: 20190417
  Serious: No
  Sender: FDA-Public Use
  Company Number: US-TEVA-2019-US-100046

PATIENT
  Age: 44 Year
  Sex: Female

DRUGS (4)
  1. ZOFRAN [Concomitant]
     Active Substance: ONDANSETRON HYDROCHLORIDE
     Indication: NAUSEA
     Dosage: TAKE 1 TABLET BY MOUTH EVERY 8 HOURS AS NEEDED FOR NAUSEA
     Route: 048
     Dates: start: 20180830
  2. FROVATRIPTAN. [Concomitant]
     Active Substance: FROVATRIPTAN
     Indication: MIGRAINE
     Dosage: TAKE 1 TABLET BY MOUTH AS NEEDED FOR MIGRAINE. IF RECURS, MAY REPEAT AFTER 2 HRS. MAX OF 3 TABS/24H
     Route: 048
  3. AJOVY [Suspect]
     Active Substance: FREMANEZUMAB-VFRM
     Indication: MIGRAINE
     Dates: start: 20181206
  4. ALMOTRIPTAN. [Concomitant]
     Active Substance: ALMOTRIPTAN
     Indication: MIGRAINE
     Dosage: TAKE 1 TAB BY MOUTH AS NEEDED FOR MIGRAINE. MAY REPEAT IN 2 HOURS IF NEEDED.
     Route: 048
     Dates: start: 20181206

REACTIONS (5)
  - Influenza like illness [Unknown]
  - Insomnia [Unknown]
  - Asthenia [Unknown]
  - Dyspnoea [Unknown]
  - Skin discolouration [Unknown]

NARRATIVE: CASE EVENT DATE: 20181206
